FAERS Safety Report 24793436 (Version 6)
Quarter: 2025Q1

REPORT INFORMATION
  Report Type: Spontaneous
  Country: US (occurrence: US)
  Receive Date: 20241231
  Receipt Date: 20250304
  Transmission Date: 20250409
  Serious: No
  Sender: PFIZER
  Company Number: US-PFIZER INC-202400329107

PATIENT
  Age: 8 Year
  Sex: Male

DRUGS (3)
  1. GENOTROPIN [Suspect]
     Active Substance: SOMATROPIN
     Dosage: 0.5 MG, DAILY
  2. GENOTROPIN [Suspect]
     Active Substance: SOMATROPIN
     Dates: start: 202307
  3. GENOTROPIN [Suspect]
     Active Substance: SOMATROPIN
     Dates: start: 202407

REACTIONS (3)
  - Device delivery system issue [Unknown]
  - Device leakage [Unknown]
  - Drug dose omission by device [Unknown]
